FAERS Safety Report 8395899-0 (Version None)
Quarter: 2012Q2

REPORT INFORMATION
  Report Type: 
  Country: None (occurrence: None)
  Receive Date: 20120530
  Receipt Date: 20120523
  Transmission Date: 20120825
  Serious: Yes (Death, Life-Threatening, Hospitalization, Other)
  Sender: FDA-Public Use
  Company Number: US-GLAXOSMITHKLINE-A0891472A

PATIENT
  Age: 73 Year
  Sex: Female
  Weight: 58.9 kg

DRUGS (10)
  1. HYCODAN [Concomitant]
     Indication: COUGH
     Dosage: 5ML AS REQUIRED
  2. LYRICA [Concomitant]
     Indication: NEUROPATHY PERIPHERAL
     Route: 048
     Dates: start: 20091214
  3. NIFEDIPINE [Concomitant]
     Indication: BLOOD PRESSURE
     Dosage: 60MG PER DAY
     Route: 048
  4. AMLODIPINE BESYLATE [Concomitant]
     Dosage: 5MG PER DAY
     Route: 048
  5. NEXIUM [Concomitant]
     Indication: ILL-DEFINED DISORDER
     Dosage: 40MG AS REQUIRED
  6. CITALOPRAM HYDROBROMIDE [Concomitant]
     Dosage: 10MG IN THE MORNING
     Route: 048
  7. OFATUMUMAB [Suspect]
     Indication: B-CELL LYMPHOMA
     Dosage: 3300MG CUMULATIVE DOSE
     Route: 042
     Dates: start: 20080407
  8. DARVON [Concomitant]
     Indication: PAIN
  9. MULTI-VITAMIN [Concomitant]
     Route: 048
  10. COMBIVENT [Concomitant]
     Indication: ASTHMA
     Route: 055

REACTIONS (18)
  - MUSCLE TWITCHING [None]
  - DEMYELINATION [None]
  - URINARY TRACT INFECTION ENTEROCOCCAL [None]
  - LYME DISEASE [None]
  - VASCULITIS CEREBRAL [None]
  - PROGRESSIVE MULTIFOCAL LEUKOENCEPHALOPATHY [None]
  - PYREXIA [None]
  - PNEUMONIA ASPIRATION [None]
  - PERFORMANCE STATUS DECREASED [None]
  - CEREBROVASCULAR DISORDER [None]
  - BRAIN OEDEMA [None]
  - CONVULSION [None]
  - BLOOD SODIUM INCREASED [None]
  - PULMONARY EMBOLISM [None]
  - GLIOSIS [None]
  - RED BLOOD CELL COUNT DECREASED [None]
  - MUSCULOSKELETAL PAIN [None]
  - VISION BLURRED [None]
